FAERS Safety Report 22365801 (Version 3)
Quarter: 2023Q4

REPORT INFORMATION
  Report Type: Spontaneous
  Country: JP (occurrence: JP)
  Receive Date: 20230525
  Receipt Date: 20231113
  Transmission Date: 20240110
  Serious: Yes (Hospitalization)
  Sender: FDA-Public Use
  Company Number: JP-RECORDATI-2023002979

PATIENT

DRUGS (5)
  1. ISTURISA [Suspect]
     Active Substance: OSILODROSTAT PHOSPHATE
     Indication: Pituitary-dependent Cushing^s syndrome
     Dosage: 3 MILLIGRAM PER DAY
     Route: 048
     Dates: start: 202108, end: 20230510
  2. ISTURISA [Suspect]
     Active Substance: OSILODROSTAT PHOSPHATE
     Dosage: 3 MILLIGRAM PER DAY
     Route: 048
     Dates: start: 2023
  3. SIGNIFOR LAR [Suspect]
     Active Substance: PASIREOTIDE PAMOATE
     Indication: Pituitary-dependent Cushing^s syndrome
     Dosage: 10 MILLIGRAM
     Route: 030
     Dates: start: 20230516, end: 2023
  4. SIGNIFOR LAR [Suspect]
     Active Substance: PASIREOTIDE PAMOATE
     Dosage: 20 MILLIGRAM
     Route: 030
     Dates: start: 2023, end: 2023
  5. CORTRIL [Concomitant]
     Active Substance: HYDROCORTISONE
     Indication: Product used for unknown indication
     Dosage: 20 MG/DAY

REACTIONS (5)
  - Hospitalisation [Unknown]
  - Premature delivery [Recovered/Resolved]
  - Amenorrhoea [Unknown]
  - Nausea [Unknown]
  - Maternal exposure during pregnancy [Recovered/Resolved]

NARRATIVE: CASE EVENT DATE: 20230101
